FAERS Safety Report 17354608 (Version 1)
Quarter: 2020Q1

REPORT INFORMATION
  Report Type: Spontaneous
  Country: US (occurrence: US)
  Receive Date: 20200130
  Receipt Date: 20200130
  Transmission Date: 20200409
  Serious: Yes (Life-Threatening)
  Sender: FDA-Public Use
  Company Number: None

PATIENT
  Age: 5 Year
  Sex: Male

DRUGS (1)
  1. FERROUS SULFATE IRON SUPPLEMENT DROPS [Suspect]
     Active Substance: FERROUS SULFATE

REACTIONS (5)
  - Physical product label issue [None]
  - Accidental overdose [None]
  - Product use complaint [None]
  - Death [None]
  - Product packaging issue [None]

NARRATIVE: CASE EVENT DATE: 20200128
